FAERS Safety Report 4938576-8 (Version None)
Quarter: 2006Q1

REPORT INFORMATION
  Report Type: 
  Country: None (occurrence: None)
  Receive Date: 20060306
  Receipt Date: 20060217
  Transmission Date: 20060701
  Serious: Yes (Hospitalization, Other)
  Sender: FDA-Public Use
  Company Number: US200602003867

PATIENT
  Age: 87 Year
  Sex: Female

DRUGS (3)
  1. FORTEO [Suspect]
     Indication: OSTEOPOROSIS
     Dates: start: 20050401
  2. FORTEO PEN (FORTEO PEN) PEN, DISPOSABLE [Concomitant]
  3. FARESTON ^SCHERING-PLOUGH^ (TOREMIFENE CITRATE) [Concomitant]

REACTIONS (2)
  - BONE NEOPLASM MALIGNANT [None]
  - SPINAL COMPRESSION FRACTURE [None]
